FAERS Safety Report 8478688-8 (Version None)
Quarter: 2012Q2

REPORT INFORMATION
  Report Type: 
  Country: None (occurrence: None)
  Receive Date: 20120621
  Receipt Date: 20120607
  Transmission Date: 20120825
  Serious: Yes (Other)
  Sender: FDA-Public Use
  Company Number: 2012SP031312

PATIENT

DRUGS (1)
  1. INTRON A (INTERFERON ALFA-2B) [Suspect]
     Indication: PRODUCT USED FOR UNKNOWN INDICATION
     Dosage: 6000000 IU; QD

REACTIONS (1)
  - CARDIOTOXICITY [None]
